FAERS Safety Report 23184652 (Version 4)
Quarter: 2024Q2

REPORT INFORMATION
  Report Type: Report from Study
  Country: US (occurrence: US)
  Receive Date: 20231115
  Receipt Date: 20240606
  Transmission Date: 20240715
  Serious: Yes (Hospitalization, Other)
  Sender: FDA-Public Use
  Company Number: US-ABBVIE-5490432

PATIENT
  Sex: Female

DRUGS (1)
  1. SKYRIZI [Suspect]
     Active Substance: RISANKIZUMAB-RZAA
     Indication: Psoriasis
     Route: 058
     Dates: start: 2023, end: 2024

REACTIONS (10)
  - Gastric cancer [Unknown]
  - Fall [Unknown]
  - Dehydration [Unknown]
  - Diabetes mellitus [Unknown]
  - Adrenal mass [Unknown]
  - Cough [Unknown]
  - Anaemia [Unknown]
  - Haemorrhage [Unknown]
  - Upper respiratory tract infection [Recovering/Resolving]
  - Muscular weakness [Unknown]
